FAERS Safety Report 4786118-2 (Version None)
Quarter: 2005Q3

REPORT INFORMATION
  Report Type: 
  Country: None (occurrence: None)
  Receive Date: 20050930
  Receipt Date: 20050921
  Transmission Date: 20060218
  Serious: Yes (Hospitalization)
  Sender: FDA-Public Use
  Company Number: 2005088221

PATIENT
  Age: 75 Year
  Sex: Male

DRUGS (10)
  1. ALDACTONE [Suspect]
     Indication: ILL-DEFINED DISORDER
     Dosage: (25 MG), ORAL
     Route: 048
  2. ALLOPURINOL [Suspect]
     Indication: ILL-DEFINED DISORDER
     Dosage: ORAL
     Route: 048
  3. OFLOCET (OFLOXACIN) [Suspect]
     Indication: PROSTATITIS
     Dosage: 400 MG (200 MG, 2 IN 1 D), ORAL
     Route: 048
     Dates: start: 20050503
  4. PRAVASTATIN [Suspect]
     Indication: ILL-DEFINED DISORDER
     Dosage: ORAL
     Route: 048
  5. ISOPTIN [Concomitant]
  6. PLAVIX [Concomitant]
  7. FUROSEMIDE [Concomitant]
  8. FONZYLANE         (BUFLOMEDIL HYDROCHLORIDE) [Concomitant]
  9. APROVEL       (IRBESARTAN) [Concomitant]
  10. DITROPAN [Concomitant]

REACTIONS (1)
  - HEPATITIS [None]
